FAERS Safety Report 4567775-2 (Version None)
Quarter: 2005Q1

REPORT INFORMATION
  Report Type: 
  Country: None (occurrence: None)
  Receive Date: 20050127
  Receipt Date: 20050117
  Transmission Date: 20050727
  Serious: Yes (Hospitalization)
  Sender: FDA-Public Use
  Company Number: 2005015136

PATIENT
  Age: 86 Year
  Sex: Female

DRUGS (12)
  1. AMLODIPINE [Suspect]
     Indication: ILL-DEFINED DISORDER
     Dosage: (5 MG), ORAL
     Route: 048
     Dates: end: 20040402
  2. ACETAMINOPHEN [Suspect]
     Indication: ILL-DEFINED DISORDER
     Dosage: (500 MG), ORAL
     Route: 048
     Dates: end: 20040402
  3. RAMIPRIL [Suspect]
     Indication: ILL-DEFINED DISORDER
     Dosage: (1.25  MG),ORAL
     Route: 048
     Dates: end: 20040402
  4. TROXERUTIN (TROXERUTIN) [Suspect]
     Indication: ILL-DEFINED DISORDER
     Dosage: (3500 MG) ORAL
     Route: 048
     Dates: end: 20040402
  5. ACETYLSALICYLIC ACID SRT [Suspect]
     Indication: ILL-DEFINED DISORDER
     Dosage: ORAL
     Route: 048
     Dates: end: 20040402
  6. FLECAINIDE ACETATE [Suspect]
     Indication: ILL-DEFINED DISORDER
     Dosage: (50 MG), ORAL
     Route: 048
     Dates: end: 20040402
  7. AMLODIPINE [Concomitant]
  8. ACETAMINOPHEN [Concomitant]
  9. RAMIPRIL [Concomitant]
  10. TROXERUTIN (TROXERUTIN) [Concomitant]
  11. ACETYLSALICYLIC ACID SRT [Concomitant]
  12. FLECAINIDE ACETATE [Concomitant]

REACTIONS (2)
  - ENTEROCOLITIS HAEMORRHAGIC [None]
  - HAEMORRHOIDS [None]
